FAERS Safety Report 11700404 (Version 1)
Quarter: 2015Q4

REPORT INFORMATION
  Report Type: Spontaneous
  Country: JP (occurrence: JP)
  Receive Date: 20151105
  Receipt Date: 20151105
  Transmission Date: 20160304
  Serious: Yes (Hospitalization, Other)
  Sender: FDA-Public Use
  Company Number: JP-009507513-1511JPN001119

PATIENT
  Age: 35 Year
  Sex: Male

DRUGS (4)
  1. BELSOMRA [Suspect]
     Active Substance: SUVOREXANT
     Dosage: 20 MG, ONCE DAILY
     Route: 048
  2. CONTOMIN [Concomitant]
     Active Substance: CHLORPROMAZINE
     Dosage: TO BE USED AS NORMAL, DAILY DOSE UNKNOWN
     Route: 048
     Dates: start: 201502
  3. CONTOMIN [Concomitant]
     Active Substance: CHLORPROMAZINE
     Indication: RESTLESSNESS
     Dosage: AS NEEDED WHEN FELT UNREST
     Route: 048
     Dates: start: 2015
  4. TETRAMIDE TABLETS 10MG [Suspect]
     Active Substance: MIANSERIN
     Indication: INITIAL INSOMNIA
     Dosage: TAKEN AS NEEDED, DAILY DOSE UNKNOWN
     Route: 048
     Dates: start: 201412

REACTIONS (2)
  - Pallor [Unknown]
  - Seizure [Not Recovered/Not Resolved]

NARRATIVE: CASE EVENT DATE: 201508
